FAERS Safety Report 25469224 (Version 1)
Quarter: 2025Q2

REPORT INFORMATION
  Report Type: Spontaneous
  Country: DE (occurrence: DE)
  Receive Date: 20250623
  Receipt Date: 20250623
  Transmission Date: 20250716
  Serious: Yes (Other)
  Sender: TEVA
  Company Number: None

PATIENT
  Age: 66 Year
  Sex: Female
  Weight: 95 kg

DRUGS (1)
  1. TAMOXIFEN [Suspect]
     Active Substance: TAMOXIFEN
     Indication: Breast cancer
     Route: 048
     Dates: start: 20210115, end: 20240115

REACTIONS (2)
  - Corneal opacity [Recovered/Resolved with Sequelae]
  - Corneal deposits [Recovered/Resolved with Sequelae]

NARRATIVE: CASE EVENT DATE: 20240805
